FAERS Safety Report 4932397-8 (Version None)
Quarter: 2006Q1

REPORT INFORMATION
  Report Type: 
  Country: None (occurrence: None)
  Receive Date: 20060228
  Receipt Date: 20060222
  Transmission Date: 20060701
  Serious: Yes (Other)
  Sender: FDA-Public Use
  Company Number: 200610168BNE

PATIENT
  Age: 57 Year
  Sex: Male

DRUGS (2)
  1. LEVITRA [Suspect]
     Dates: start: 20060117
  2. METFORMIN [Concomitant]

REACTIONS (2)
  - DIPLOPIA [None]
  - EYE DISORDER [None]
